FAERS Safety Report 7529055-2 (Version None)
Quarter: 2011Q2

REPORT INFORMATION
  Report Type: 
  Country: None (occurrence: None)
  Receive Date: 20110607
  Receipt Date: 20110527
  Transmission Date: 20111010
  Serious: Yes (Hospitalization, Other)
  Sender: FDA-Public Use
  Company Number: PHBS2006BR07718

PATIENT
  Sex: Female
  Weight: 90 kg

DRUGS (6)
  1. DILTIAZEM [Concomitant]
  2. ZESTRIL [Concomitant]
     Dosage: 2 DF, UNK
  3. BALCOR [Concomitant]
     Indication: HYPERTENSION
     Dosage: 60 MG, UNK
  4. FORMOTEROL FUMARATE [Suspect]
     Indication: ASTHMA
     Dosage: 2 DF, UNK
     Dates: start: 20050101
  5. PROPYLTHIOURACIL [Concomitant]
     Dosage: 2 DF, UNK
     Route: 048
  6. LIPITOR [Concomitant]
     Indication: HYPERCHOLESTEROLAEMIA
     Dosage: 1 DF, QD
     Route: 048

REACTIONS (16)
  - OROPHARYNGEAL PAIN [None]
  - DYSPNOEA [None]
  - WRONG TECHNIQUE IN DRUG USAGE PROCESS [None]
  - LARYNGEAL ULCERATION [None]
  - LUNG NEOPLASM MALIGNANT [None]
  - TOOTH SOCKET HAEMORRHAGE [None]
  - EAR PAIN [None]
  - HAEMORRHAGE [None]
  - GALLBLADDER POLYP [None]
  - DRUG INEFFECTIVE [None]
  - BLOOD GLUCOSE INCREASED [None]
  - WEIGHT DECREASED [None]
  - ODYNOPHAGIA [None]
  - SINUS HEADACHE [None]
  - CARDIO-RESPIRATORY ARREST [None]
  - ASTHMA [None]
